FAERS Safety Report 11843643 (Version 1)
Quarter: 2015Q4

REPORT INFORMATION
  Report Type: Spontaneous
  Country: US (occurrence: US)
  Receive Date: 20151217
  Receipt Date: 20151217
  Transmission Date: 20160305
  Serious: Yes (Hospitalization)
  Sender: FDA-Public Use
  Company Number: US-HOSPIRA-2818134

PATIENT
  Age: 15 Year
  Sex: Female

DRUGS (12)
  1. CLOFARABINE [Suspect]
     Active Substance: CLOFARABINE
     Indication: PRECURSOR B-LYMPHOBLASTIC LYMPHOMA
     Dosage: NOT REPORTED
     Dates: end: 20140805
  2. METHOTREXATE [Suspect]
     Active Substance: METHOTREXATE
     Indication: PRECURSOR B-LYMPHOBLASTIC LYMPHOMA
     Dosage: 2-2.99; NOT REPORTED
     Route: 037
     Dates: end: 20150224
  3. METHOTREXATE [Suspect]
     Active Substance: METHOTREXATE
     Indication: PRECURSOR B-LYMPHOBLASTIC LYMPHOMA
     Dosage: 3-8.99; NOT REPORTED
     Route: 037
     Dates: end: 20150224
  4. VINCRISTINE SULFATE. [Suspect]
     Active Substance: VINCRISTINE SULFATE
     Indication: PRECURSOR B-LYMPHOBLASTIC LYMPHOMA
     Dosage: IV PUSH OVER 1 MINUTE ON DAYS 1, 29 AND 57
     Dates: end: 20150224
  5. PREDNISONE. [Suspect]
     Active Substance: PREDNISONE
     Indication: PRECURSOR B-LYMPHOBLASTIC LYMPHOMA
     Dosage: ON DAYS 1-5, 29-33, AND 57-61
     Route: 048
     Dates: end: 20150228
  6. METHOTREXATE [Suspect]
     Active Substance: METHOTREXATE
     Indication: PRECURSOR B-LYMPHOBLASTIC LYMPHOMA
     Dosage: DAY 8, 15, 22, 29, 36, 43, 50, 57, 64, 71 + 78(OMIT ON DAYS WHEN INTRATHECAL METHOTREXATE WAS GIVEN)
     Route: 048
     Dates: end: 20150224
  7. VINCRISTINE SULFATE. [Suspect]
     Active Substance: VINCRISTINE SULFATE
     Indication: PRECURSOR B-LYMPHOBLASTIC LYMPHOMA
     Dosage: IV PUSH OVER 1 MINUTE OR VIA MINIBAG INFUSION
     Dates: end: 20150224
  8. MERCAPTOPURINE. [Suspect]
     Active Substance: MERCAPTOPURINE
     Indication: PRECURSOR B-LYMPHOBLASTIC LYMPHOMA
     Dosage: ON DAYS 1-84
     Route: 048
     Dates: end: 20150302
  9. CYCLOPHOSPHAMIDE. [Suspect]
     Active Substance: CYCLOPHOSPHAMIDE
     Indication: PRECURSOR B-LYMPHOBLASTIC LYMPHOMA
     Dosage: NOT REPORTED
     Dates: end: 20140810
  10. METHOTREXATE [Suspect]
     Active Substance: METHOTREXATE
     Indication: PRECURSOR B-LYMPHOBLASTIC LYMPHOMA
     Dosage: 3-8.99; NOT REPORTED
     Route: 037
     Dates: end: 20150224
  11. ETOPOSIDE. [Suspect]
     Active Substance: ETOPOSIDE
     Indication: PRECURSOR B-LYMPHOBLASTIC LYMPHOMA
     Dosage: NOT REPORTED
     Dates: end: 20140810
  12. PEGASPARGASE [Suspect]
     Active Substance: PEGASPARGASE
     Indication: PRECURSOR B-LYMPHOBLASTIC LYMPHOMA
     Dosage: NOT REPORTED
     Dates: end: 20141105

REACTIONS (1)
  - Infection [Recovered/Resolved]

NARRATIVE: CASE EVENT DATE: 20150304
